FAERS Safety Report 12054836 (Version 1)
Quarter: 2016Q1

REPORT INFORMATION
  Report Type: Report from Study
  Country: US (occurrence: US)
  Receive Date: 20160209
  Receipt Date: 20160209
  Transmission Date: 20160526
  Serious: Yes (Other)
  Sender: FDA-Public Use
  Company Number: US-BAXALTA-2016BLT000669

PATIENT
  Age: 62 Year
  Sex: Female
  Weight: 78.6 kg

DRUGS (2)
  1. GAMMAGARD LIQUID [Suspect]
     Active Substance: HUMAN IMMUNOGLOBULIN G
     Dosage: 50 UNK, UNK
     Route: 042
     Dates: start: 20160125
  2. GAMMAGARD LIQUID [Suspect]
     Active Substance: HUMAN IMMUNOGLOBULIN G
     Indication: IMMUNODEFICIENCY COMMON VARIABLE
     Dosage: 50 G, UNK
     Route: 042
     Dates: start: 201512

REACTIONS (6)
  - Erythema [Recovering/Resolving]
  - Infusion site extravasation [Recovering/Resolving]
  - Pyrexia [Unknown]
  - Infection [Recovering/Resolving]
  - Peripheral swelling [Recovering/Resolving]
  - Pain in extremity [Recovering/Resolving]

NARRATIVE: CASE EVENT DATE: 20160125
